FAERS Safety Report 8345946-7 (Version None)
Quarter: 2012Q2

REPORT INFORMATION
  Report Type: 
  Country: None (occurrence: None)
  Receive Date: 20120507
  Receipt Date: 20120425
  Transmission Date: 20120825
  Serious: Yes (Hospitalization)
  Sender: FDA-Public Use
  Company Number: 2012SP022010

PATIENT

DRUGS (3)
  1. REBETOL [Suspect]
     Indication: HEPATITIS C
     Dosage: 800 MG; QD; PO
     Route: 048
     Dates: start: 20120405
  2. PEG-INTRON [Suspect]
     Indication: HEPATITIS C
     Dosage: 1.4 MCG/KG; QW; SC
     Route: 058
     Dates: start: 20120405
  3. TELAVIC [Suspect]
     Indication: HEPATITIS C
     Dosage: 2250 MG; QD; PO
     Route: 048
     Dates: start: 20120405

REACTIONS (3)
  - ASTHENIA [None]
  - MALAISE [None]
  - THIRST [None]
